FAERS Safety Report 4964477-5 (Version None)
Quarter: 2006Q2

REPORT INFORMATION
  Report Type: 
  Country: None (occurrence: None)
  Receive Date: 20060406
  Receipt Date: 20060331
  Transmission Date: 20061013
  Serious: Yes (Hospitalization, Other)
  Sender: FDA-Public Use
  Company Number: US-RB-3024-2006

PATIENT
  Age: 39 Year
  Sex: Female

DRUGS (14)
  1. BUPRENORPHINE HCL [Suspect]
     Indication: DRUG DEPENDENCE
     Route: 060
  2. BUPRENORPHINE HCL [Suspect]
     Route: 060
  3. BUPRENORPHINE HCL [Suspect]
     Route: 060
  4. BUPRENORPHINE HCL [Suspect]
     Route: 060
  5. BUPRENORPHINE HCL [Suspect]
     Route: 060
  6. BUPRENORPHINE HCL [Suspect]
     Route: 060
  7. METHADONE HCL [Suspect]
     Indication: DRUG DEPENDENCE
     Route: 048
  8. MORPHINE SULFATE [Suspect]
     Indication: DRUG DEPENDENCE
     Route: 048
  9. MORPHINE SULFATE [Suspect]
     Route: 048
  10. MORPHINE SULFATE [Suspect]
     Route: 048
  11. MORPHINE SULFATE [Suspect]
     Route: 048
  12. MAALOX                                  /NET/ [Concomitant]
     Indication: DRUG USE FOR UNKNOWN INDICATION
     Dosage: DOSAGE UNKNOWN
     Route: 065
  13. MILK OF MAGNESIA TAB [Concomitant]
     Indication: DRUG USE FOR UNKNOWN INDICATION
     Dosage: DOSAGE UNKNOWN
     Route: 065
  14. FLEET ENEMA                             /CAN/ [Concomitant]
     Indication: DRUG USE FOR UNKNOWN INDICATION
     Dosage: DOSAGE UNKNOWN
     Route: 065

REACTIONS (7)
  - CHOLELITHIASIS [None]
  - DRUG EXPOSURE DURING PREGNANCY [None]
  - DRUG WITHDRAWAL SYNDROME [None]
  - FAECES DISCOLOURED [None]
  - GALLBLADDER DISORDER [None]
  - HEPATITIS [None]
  - RESTLESSNESS [None]
